FAERS Safety Report 19197807 (Version 1)
Quarter: 2021Q2

REPORT INFORMATION
  Report Type: Spontaneous
  Country: US (occurrence: CA)
  Receive Date: 20210429
  Receipt Date: 20210429
  Transmission Date: 20210717
  Serious: Yes (Disabling)
  Sender: FDA-Public Use
  Company Number: CA-BIOMARINAP-CA-2021-136246

PATIENT
  Age: 12 Year
  Sex: Female
  Weight: 29.2 kg

DRUGS (12)
  1. ALDURAZYME [Suspect]
     Active Substance: LARONIDASE
     Indication: MUCOPOLYSACCHARIDOSIS I
     Dosage: 20.3 MILLIGRAM, QW
     Route: 041
     Dates: start: 20110509, end: 20171012
  2. ALDURAZYME [Suspect]
     Active Substance: LARONIDASE
     Dosage: 0.7 MILLIGRAM/KILOGRAM, QW
     Route: 041
     Dates: start: 20171025
  3. ALDURAZYME [Suspect]
     Active Substance: LARONIDASE
     Dosage: 2.9 MILLIGRAM
     Route: 041
     Dates: start: 20170922
  4. DICLOFENAC [Concomitant]
     Active Substance: DICLOFENAC
     Indication: ARTHRALGIA
  5. DIPHENHYDRAMINE. [Concomitant]
     Active Substance: DIPHENHYDRAMINE
     Indication: PREMEDICATION
  6. ASA [Concomitant]
     Active Substance: ASPIRIN
     Indication: ARTHRALGIA
  7. FUROSEMIDE. [Concomitant]
     Active Substance: FUROSEMIDE
     Indication: PRODUCT USED FOR UNKNOWN INDICATION
  8. LIDOCAINE;PRILOCAINE [Concomitant]
     Indication: PREMEDICATION
  9. ACETAMINOPHEN. [Concomitant]
     Active Substance: ACETAMINOPHEN
     Indication: PREMEDICATION
  10. BENADRYL [Concomitant]
     Active Substance: DIPHENHYDRAMINE HYDROCHLORIDE
     Indication: PREMEDICATION
  11. IBUPROFEN. [Concomitant]
     Active Substance: IBUPROFEN
     Indication: PREMEDICATION
  12. WARFARIN SODIUM. [Concomitant]
     Active Substance: WARFARIN SODIUM
     Indication: ARTHRALGIA

REACTIONS (14)
  - Fall [Unknown]
  - Somnolence [Recovering/Resolving]
  - Anxiety [Recovered/Resolved]
  - Chills [Recovering/Resolving]
  - Skin warm [Recovering/Resolving]
  - Pallor [Recovering/Resolving]
  - Agitation [Recovering/Resolving]
  - Malaise [Recovering/Resolving]
  - Respiratory rate increased [Recovering/Resolving]
  - Hypopnoea [Recovering/Resolving]
  - Anxiety [Recovered/Resolved]
  - Body temperature increased [Recovering/Resolving]
  - Fatigue [Recovering/Resolving]
  - Dry skin [Recovering/Resolving]

NARRATIVE: CASE EVENT DATE: 20171012
